FAERS Safety Report 5924440-4 (Version None)
Quarter: 2008Q4

REPORT INFORMATION
  Report Type: 
  Country: None (occurrence: None)
  Receive Date: 20081020
  Receipt Date: 20081009
  Transmission Date: 20090506
  Serious: No
  Sender: FDA-Public Use
  Company Number: US-B.I. PHARMACEUTICALS,INC./RIDGEFIELD-2008-BP-14923BP

PATIENT
  Age: 70 Year
  Sex: Male

DRUGS (6)
  1. FLOMAX [Suspect]
     Indication: BENIGN PROSTATIC HYPERPLASIA
     Dosage: .4MG
     Route: 048
     Dates: start: 20070901
  2. FLOMAX [Suspect]
     Indication: PROSTATE TENDERNESS
  3. FLOMAX [Suspect]
     Indication: FLATULENCE
  4. METFORMIN HYDROCHLORIDE [Concomitant]
     Indication: TYPE 2 DIABETES MELLITUS
  5. COZAAR [Concomitant]
     Indication: HYPERTENSION
  6. ZETIA [Concomitant]
     Indication: BLOOD CHOLESTEROL INCREASED

REACTIONS (1)
  - DRY MOUTH [None]
